FAERS Safety Report 6244687-X (Version None)
Quarter: 2009Q2

REPORT INFORMATION
  Report Type: 
  Country: None (occurrence: None)
  Receive Date: 20090619
  Receipt Date: 20090501
  Transmission Date: 20091009
  Serious: No
  Sender: FDA-Public Use
  Company Number: ALL1-2009-01235

PATIENT
  Age: 44 Year
  Sex: Male
  Weight: 93 kg

DRUGS (4)
  1. VYVANSE [Suspect]
     Indication: ATTENTION DEFICIT/HYPERACTIVITY DISORDER
     Dosage: 70 MG, 1X/DAY:QD, ORAL
     Route: 048
     Dates: start: 20090201
  2. LAMICTAL [Concomitant]
  3. VITAMIN B1 TAB [Concomitant]
  4. MULTIVITAMIN /00831701/ (VITAMINS NOS) [Concomitant]

REACTIONS (2)
  - BLOOD URINE PRESENT [None]
  - DRUG SCREEN POSITIVE [None]
